FAERS Safety Report 4347267-6 (Version None)
Quarter: 2004Q1

REPORT INFORMATION
  Report Type: 
  Country: None (occurrence: None)
  Receive Date: 20040325
  Receipt Date: 20040212
  Transmission Date: 20041129
  Serious: No
  Sender: FDA-Public Use
  Company Number: USA040158035

PATIENT
  Age: 82 Year
  Sex: Female

DRUGS (1)
  1. FORTEO [Suspect]
     Indication: OSTEOPOROSIS
     Dates: start: 20040106

REACTIONS (6)
  - ABDOMINAL PAIN UPPER [None]
  - DRY MOUTH [None]
  - GLOSSITIS [None]
  - INJECTION SITE PRURITUS [None]
  - PRURITUS [None]
  - TONGUE DISORDER [None]
